FAERS Safety Report 6073332-1 (Version None)
Quarter: 2009Q1

REPORT INFORMATION
  Report Type: 
  Country: None (occurrence: None)
  Receive Date: 20090211
  Receipt Date: 20090202
  Transmission Date: 20090719
  Serious: Yes (Other)
  Sender: FDA-Public Use
  Company Number: PHHY2009IE00659

PATIENT
  Sex: Male

DRUGS (4)
  1. CLOZARIL [Suspect]
     Indication: SCHIZOPHRENIA
     Dosage: 400 MG/DAY
     Route: 048
     Dates: start: 20040116
  2. LITHIUM CARBONATE [Concomitant]
     Indication: AFFECTIVE DISORDER
     Dosage: 1200 MG, QD
  3. PROPRANOLOL [Concomitant]
     Indication: AFFECTIVE DISORDER
     Dosage: 40 MG, BID
  4. EPILIM [Concomitant]
     Indication: AFFECTIVE DISORDER
     Dosage: 1000 MG, QD

REACTIONS (2)
  - HAEMOCHROMATOSIS [None]
  - HAEMOGLOBIN INCREASED [None]
